FAERS Safety Report 23799502 (Version 1)
Quarter: 2024Q2

REPORT INFORMATION
  Report Type: Spontaneous
  Country: US (occurrence: None)
  Receive Date: 20240428
  Receipt Date: 20240428
  Transmission Date: 20240716
  Serious: Yes (Death, Life-Threatening, Hospitalization, Disabling)
  Sender: FDA-Public Use
  Company Number: None

PATIENT
  Age: 59 Year
  Sex: Male
  Weight: 79.2 kg

DRUGS (6)
  1. DUPIXENT [Suspect]
     Active Substance: DUPILUMAB
     Indication: Asthma
  2. LOSARTAN [Concomitant]
     Active Substance: LOSARTAN
  3. REPATHA [Concomitant]
     Active Substance: EVOLOCUMAB
  4. LEXAPRO [Concomitant]
  5. TADALAFIL [Concomitant]
  6. multivitamin [Concomitant]

REACTIONS (1)
  - Cerebellar stroke [None]

NARRATIVE: CASE EVENT DATE: 20240422
